FAERS Safety Report 21373933 (Version 1)
Quarter: 2022Q3

REPORT INFORMATION
  Report Type: Spontaneous
  Country: ES (occurrence: ES)
  Receive Date: 20220926
  Receipt Date: 20220926
  Transmission Date: 20221026
  Serious: Yes (Other)
  Sender: FDA-Public Use
  Company Number: ES-BAXTER-2022BAX019246

PATIENT
  Age: 44 Year
  Sex: Male

DRUGS (11)
  1. MELPHALAN [Suspect]
     Active Substance: MELPHALAN
     Indication: Product used for unknown indication
     Dosage: UNK, CONDITIONING BEAM REGIMEN
     Route: 065
  2. DOXORUBICIN [Suspect]
     Active Substance: DOXORUBICIN
     Indication: Mantle cell lymphoma stage IV
     Dosage: FIRST LINE IMMUNOCHEMOTHERAPY TREATMENT WITH FOUR CYCLES OF R-CHOP SCHEME
     Route: 065
  3. RITUXIMAB [Suspect]
     Active Substance: RITUXIMAB
     Indication: Mantle cell lymphoma stage IV
     Dosage: FIRST LINE IMMUNOCHEMOTHERAPY TREATMENT WITH FOUR CYCLES OF R-CHOP SCHEME AND TWO CYCLES OF R-DHAP S
     Route: 065
  4. DEXAMETHASONE [Suspect]
     Active Substance: DEXAMETHASONE
     Indication: Mantle cell lymphoma stage IV
     Dosage: FIRST LINE AND TWO CYCLES OF R-DHAP SCHEME
     Route: 065
  5. VINCRISTINE SULFATE [Suspect]
     Active Substance: VINCRISTINE SULFATE
     Indication: Mantle cell lymphoma stage IV
     Dosage: FIRST LINE IMMUNOCHEMOTHERAPY TREATMENT WITH FOUR CYCLES OF R-CHOP SCHEME
     Route: 065
  6. CYTARABINE [Suspect]
     Active Substance: CYTARABINE
     Indication: Mantle cell lymphoma stage IV
     Dosage: FIRST LINE AND TWO CYCLES OF R-DHAP SCHEME, CONDITIOINING BEAM REGIMEN
     Route: 065
  7. CARMUSTINE [Suspect]
     Active Substance: CARMUSTINE
     Indication: Mantle cell lymphoma stage IV
     Dosage: CONDITIONING BEAM REGIMEN
     Route: 065
  8. ETOPOSIDE [Suspect]
     Active Substance: ETOPOSIDE
     Indication: Mantle cell lymphoma stage IV
     Dosage: CONDITIONING BEAM REGIMEN
     Route: 065
  9. CYCLOPHOSPHAMIDE [Suspect]
     Active Substance: CYCLOPHOSPHAMIDE
     Indication: Mantle cell lymphoma stage IV
     Dosage: FIRST LINE IMMUNOCHEMOTHERAPY TREATMENT WITH FOUR CYCLES OF R-CHOP SCHEME
     Route: 065
  10. CISPLATIN [Suspect]
     Active Substance: CISPLATIN
     Indication: Mantle cell lymphoma stage IV
     Dosage: FIRST LINE AND TWO CYCLES OF R-DHAP SCHEME
     Route: 065
  11. PREDNISONE [Suspect]
     Active Substance: PREDNISONE
     Indication: Mantle cell lymphoma stage IV
     Dosage: FIRST LINE IMMUNOCHEMOTHERAPY TREATMENT WITH FOUR CYCLES OF R-CHOP SCHEME
     Route: 065

REACTIONS (4)
  - Mantle cell lymphoma [Unknown]
  - Thrombocytopenia [Unknown]
  - Symptom recurrence [Unknown]
  - Recurrent cancer [Unknown]

NARRATIVE: CASE EVENT DATE: 20200101
